FAERS Safety Report 4567244-X (Version None)
Quarter: 2005Q1

REPORT INFORMATION
  Report Type: 
  Country: None (occurrence: None)
  Receive Date: 20050127
  Receipt Date: 20050121
  Transmission Date: 20050727
  Serious: Yes (Death, Other)
  Sender: FDA-Public Use
  Company Number: KII-2005-0014784

PATIENT
  Age: 34 Year
  Sex: Male

DRUGS (1)
  1. OXYCODONE HCL [Suspect]

REACTIONS (4)
  - APNOEA [None]
  - BLOOD POTASSIUM INCREASED [None]
  - BRAIN DEATH [None]
  - CARDIAC ARREST [None]
